FAERS Safety Report 10257518 (Version 1)
Quarter: 2014Q2

REPORT INFORMATION
  Report Type: Spontaneous
  Country: JP (occurrence: None)
  Receive Date: 20140620
  Receipt Date: 20140620
  Transmission Date: 20141212
  Serious: Yes (Death)
  Sender: FDA-Public Use
  Company Number: 2014IE00540

PATIENT
  Sex: 0

DRUGS (1)
  1. GEMCITABINE (GEMCITABINE) INJECTION [Suspect]
     Indication: PANCREATIC CARCINOMA
     Dosage: 800 MG/M2 FOR 30 MIN FOR THE INITIAL 3 WEEKS, INFUSION

REACTIONS (1)
  - Duodenal perforation [None]
